FAERS Safety Report 5228838-1 (Version None)
Quarter: 2007Q1

REPORT INFORMATION
  Report Type: 
  Country: None (occurrence: None)
  Receive Date: 20061201
  Receipt Date: 20061003
  Transmission Date: 20070707
  Serious: No
  Sender: FDA-Public Use
  Company Number: US200610000663

PATIENT
  Age: 51 Year
  Sex: Female

DRUGS (7)
  1. CYMBALTA [Suspect]
     Indication: DEPRESSION
     Dosage: 60 MG, DAILY (1/D), ORAL
     Route: 048
     Dates: start: 20060801
  2. PROZAC [Suspect]
     Indication: DEPRESSION
     Dosage: ORAL
     Route: 048
     Dates: start: 19920101
  3. LOTREL [Concomitant]
  4. METOPROLOL TARTRATE [Concomitant]
  5. AMBIEN [Concomitant]
  6. REQUIP [Concomitant]
  7. ZOLOFT [Concomitant]

REACTIONS (6)
  - DRUG INEFFECTIVE [None]
  - FATIGUE [None]
  - IMPAIRED SELF-CARE [None]
  - PAIN [None]
  - SOMNOLENCE [None]
  - WEIGHT INCREASED [None]
